FAERS Safety Report 24671808 (Version 1)
Quarter: 2024Q4

REPORT INFORMATION
  Report Type: Spontaneous
  Country: HR (occurrence: HR)
  Receive Date: 20241127
  Receipt Date: 20241127
  Transmission Date: 20250115
  Serious: Yes (Other)
  Sender: NOVARTIS
  Company Number: HR-002147023-NVSC2024HR224075

PATIENT
  Age: 63 Year
  Sex: Female

DRUGS (1)
  1. TASIGNA [Suspect]
     Active Substance: NILOTINIB
     Indication: Chronic myeloid leukaemia
     Dosage: 400 MG, BID
     Route: 065

REACTIONS (4)
  - Peripheral artery occlusion [Unknown]
  - Hepatic enzyme increased [Unknown]
  - Intermittent claudication [Unknown]
  - Pain in extremity [Unknown]
